FAERS Safety Report 13976659 (Version 1)
Quarter: 2017Q3

REPORT INFORMATION
  Report Type: Report from Study
  Country: US (occurrence: US)
  Receive Date: 20170915
  Receipt Date: 20170915
  Transmission Date: 20171128
  Serious: Yes (Hospitalization)
  Sender: FDA-Public Use
  Company Number: US-EISAI MEDICAL RESEARCH-EC-2017-030071

PATIENT
  Age: 62 Year
  Sex: Male
  Weight: 90 kg

DRUGS (16)
  1. LENVIMA [Suspect]
     Active Substance: LENVATINIB
     Route: 048
     Dates: start: 201709
  2. ATENOLOL. [Concomitant]
     Active Substance: ATENOLOL
  3. GLIMEPIRIDE. [Concomitant]
     Active Substance: GLIMEPIRIDE
  4. ONDANSETRON [Concomitant]
     Active Substance: ONDANSETRON
  5. OXYCODONE [Concomitant]
     Active Substance: OXYCODONE
  6. TYLENOL [Concomitant]
     Active Substance: ACETAMINOPHEN
  7. AFINITOR [Concomitant]
     Active Substance: EVEROLIMUS
  8. HYDRALAZINE [Concomitant]
     Active Substance: HYDRALAZINE HYDROCHLORIDE
  9. TUMS [Concomitant]
     Active Substance: CALCIUM CARBONATE
  10. LENVIMA [Suspect]
     Active Substance: LENVATINIB
     Indication: RENAL CANCER
     Route: 048
     Dates: start: 20170730, end: 201709
  11. TUMS [Concomitant]
     Active Substance: CALCIUM CARBONATE
  12. CYCLOBENZAPRINE. [Concomitant]
     Active Substance: CYCLOBENZAPRINE
  13. HYDROCORTIZONE [Concomitant]
     Active Substance: HYDROCORTISONE
  14. METFORMIN [Concomitant]
     Active Substance: METFORMIN HYDROCHLORIDE
  15. AMBIEN [Concomitant]
     Active Substance: ZOLPIDEM TARTRATE
  16. GABAPENTIN. [Concomitant]
     Active Substance: GABAPENTIN

REACTIONS (7)
  - Headache [Unknown]
  - Arthralgia [Unknown]
  - Fatigue [Unknown]
  - Rash [Unknown]
  - Hypertension [Unknown]
  - Pain [Unknown]
  - Blister [Unknown]

NARRATIVE: CASE EVENT DATE: 2017
